FAERS Safety Report 11735695 (Version 1)
Quarter: 2015Q4

REPORT INFORMATION
  Report Type: Other
  Country: GB (occurrence: GB)
  Receive Date: 20151113
  Receipt Date: 20151113
  Transmission Date: 20160304
  Serious: Yes (Disabling)
  Sender: FDA-Public Use
  Company Number: GB-MYLANLABS-2015M1038183

PATIENT

DRUGS (9)
  1. AMOXICILLIN. [Concomitant]
     Active Substance: AMOXICILLIN
     Dosage: 1 DF, TID
     Dates: start: 20150828, end: 20150904
  2. NORTRIPTYLINE [Concomitant]
     Active Substance: NORTRIPTYLINE
     Dosage: 3 DF, QD (AT NIGHT)
     Dates: start: 20140829
  3. LANSOPRAZOLE. [Concomitant]
     Active Substance: LANSOPRAZOLE
     Dosage: 1 DF, QD
     Dates: start: 20140829
  4. ATORVASTATIN [Suspect]
     Active Substance: ATORVASTATIN
     Dosage: UNK
     Dates: start: 20151012
  5. DAKTACORT [Concomitant]
     Active Substance: HYDROCORTISONE\MICONAZOLE NITRATE
     Dosage: 1 DF, BID (APPLY TWICE DAILY)
     Dates: start: 20150817, end: 20150831
  6. METFORMIN [Concomitant]
     Active Substance: METFORMIN HYDROCHLORIDE
     Dosage: UNK (ONE IN THE MORNING FOR A WEEK THEN MAKE IT TWICE...)
     Dates: start: 20150928
  7. PARACETAMOL [Concomitant]
     Active Substance: ACETAMINOPHEN
     Dosage: UNK (TAKE 1 OR 2 4 TIMES/DAY)
     Dates: start: 20140829, end: 20150928
  8. ZOPICLONE [Concomitant]
     Active Substance: ZOPICLONE
     Dosage: 1 DF, QD (AT NIGHT)
     Dates: start: 20151012
  9. PREGABALIN. [Concomitant]
     Active Substance: PREGABALIN
     Dosage: 3 DF, UNK (ONE TABLET IN THE MORNING 2 TABLETS AT NIGHT)
     Dates: start: 20140829

REACTIONS (4)
  - Dizziness [Recovered/Resolved]
  - Vision blurred [Recovered/Resolved]
  - Visual impairment [Recovered/Resolved]
  - Diplopia [Recovered/Resolved]

NARRATIVE: CASE EVENT DATE: 20151019
